FAERS Safety Report 5464795-0 (Version None)
Quarter: 2007Q3

REPORT INFORMATION
  Report Type: 
  Country: None (occurrence: None)
  Receive Date: 20070921
  Receipt Date: 20070830
  Transmission Date: 20080115
  Serious: Yes (Life-Threatening)
  Sender: FDA-Public Use
  Company Number: GB-PFIZER INC-2007068096

PATIENT
  Age: 52 Year
  Sex: Male
  Weight: 80 kg

DRUGS (4)
  1. EPANUTIN INJECTABLE [Suspect]
     Indication: EPILEPSY
     Route: 042
     Dates: start: 20070810, end: 20070815
  2. PHENYTOIN [Suspect]
     Indication: EPILEPSY
  3. DALTEPARIN SODIUM [Concomitant]
     Indication: PROPHYLAXIS
     Route: 058
  4. PANTOPRAZOLE SODIUM [Concomitant]
     Route: 042

REACTIONS (4)
  - BLOOD ALBUMIN DECREASED [None]
  - BLOOD UREA DECREASED [None]
  - CONVULSION [None]
  - VISUAL DISTURBANCE [None]
